FAERS Safety Report 7356159-X (Version None)
Quarter: 2011Q1

REPORT INFORMATION
  Report Type: 
  Country: None (occurrence: None)
  Receive Date: 20110316
  Receipt Date: 20110303
  Transmission Date: 20110831
  Serious: Yes (Hospitalization)
  Sender: FDA-Public Use
  Company Number: DE-CELGENEUS-AZADE200800314

PATIENT
  Age: 65 Year
  Sex: Male
  Weight: 75 kg

DRUGS (16)
  1. VIDAZA [Suspect]
     Indication: MYELODYSPLASTIC SYNDROME
     Route: 051
     Dates: start: 20080822, end: 20080828
  2. PANTOPRAZOLE [Concomitant]
     Route: 048
  3. RED BLOOD CELLS [Concomitant]
     Route: 051
  4. PLATELETS [Concomitant]
     Route: 065
  5. ENALAPRIL MALEATE [Concomitant]
     Route: 048
  6. AMLODIPINE [Concomitant]
     Route: 048
  7. BISOPROLOL [Concomitant]
     Route: 048
  8. XIPAMID [Concomitant]
     Route: 048
  9. LEVOFLOXACIN [Concomitant]
     Indication: ANTIBIOTIC THERAPY
     Route: 048
  10. POTASSIUM SALT [Concomitant]
     Route: 048
  11. ONDANSETRON [Concomitant]
     Route: 051
  12. NEULASTA [Suspect]
     Indication: CHEMOTHERAPY
     Route: 065
  13. SODIUM CHLORIDE [Concomitant]
     Route: 051
  14. FUROSEMIDE [Concomitant]
     Route: 048
  15. ALLOPURINOL [Concomitant]
     Route: 048
  16. VORICONAZOL [Concomitant]
     Route: 048

REACTIONS (6)
  - GINGIVAL BLEEDING [None]
  - C-REACTIVE PROTEIN INCREASED [None]
  - HYPERSENSITIVITY [None]
  - GLOSSITIS [None]
  - DYSPHAGIA [None]
  - SALIVARY HYPERSECRETION [None]
